FAERS Safety Report 7529680-9 (Version None)
Quarter: 2011Q2

REPORT INFORMATION
  Report Type: 
  Country: None (occurrence: None)
  Receive Date: 20110607
  Receipt Date: 20110503
  Transmission Date: 20111010
  Serious: Yes (Other)
  Sender: FDA-Public Use
  Company Number: A0925583A

PATIENT
  Age: 63 Year
  Sex: Female

DRUGS (6)
  1. SINUS MEDICATION [Concomitant]
  2. MUCINEX [Concomitant]
  3. TOPROL-XL [Concomitant]
  4. LOSARTAN POTASSIUM [Concomitant]
  5. LOVAZA [Suspect]
     Dosage: 2CAP PER DAY
     Route: 048
     Dates: end: 20110428
  6. JANUMET [Concomitant]

REACTIONS (4)
  - DENTAL CARIES [None]
  - AGEUSIA [None]
  - ANOSMIA [None]
  - DYSGEUSIA [None]
